FAERS Safety Report 20088375 (Version 4)
Quarter: 2021Q4

REPORT INFORMATION
  Report Type: Other
  Country: US (occurrence: None)
  Receive Date: 20211118
  Receipt Date: 20211227
  Transmission Date: 20220303
  Serious: Yes (Hospitalization, Disabling, Other)
  Sender: FDA-Public Use
  Company Number: US-ROCHE-2955362

PATIENT
  Age: 55 Year
  Sex: Female

DRUGS (14)
  1. EVRYSDI [Suspect]
     Active Substance: RISDIPLAM
     Indication: Spinal muscular atrophy
     Route: 048
     Dates: start: 20211008, end: 20211104
  2. EVRYSDI [Suspect]
     Active Substance: RISDIPLAM
     Indication: Spinal muscular atrophy
  3. OMEPRAZOLE [Concomitant]
     Active Substance: OMEPRAZOLE
  4. TYLENOL [Concomitant]
     Active Substance: ACETAMINOPHEN
     Route: 048
  5. ALBUTEROL SULFATE [Concomitant]
     Active Substance: ALBUTEROL SULFATE
     Route: 055
     Dates: start: 20131029
  6. ZITHROMAX [Concomitant]
     Active Substance: AZITHROMYCIN DIHYDRATE
     Indication: Bronchitis
     Route: 048
     Dates: start: 20191115
  7. CALCIUM CARBONATE [Concomitant]
     Active Substance: CALCIUM CARBONATE
     Route: 048
  8. DIMETHICONE [Concomitant]
     Active Substance: DIMETHICONE
     Dates: start: 20140408
  9. GRALISE [Concomitant]
     Active Substance: GABAPENTIN
     Indication: Neuralgia
     Route: 048
  10. NEURONTIN [Concomitant]
     Active Substance: GABAPENTIN
     Indication: Neuralgia
     Route: 048
     Dates: start: 20200917
  11. ADVIL [Concomitant]
     Active Substance: IBUPROFEN
     Route: 048
  12. PRINIVIL [Concomitant]
     Active Substance: LISINOPRIL
     Route: 048
  13. MOBIC [Concomitant]
     Active Substance: MELOXICAM
     Route: 048
  14. MYRBETRIQ [Concomitant]
     Active Substance: MIRABEGRON
     Route: 048

REACTIONS (5)
  - Abdominal pain upper [Recovered/Resolved]
  - Nausea [Recovered/Resolved]
  - COVID-19 [Unknown]
  - Headache [Recovered/Resolved]
  - Wound [Not Recovered/Not Resolved]

NARRATIVE: CASE EVENT DATE: 20211101
